FAERS Safety Report 8814667 (Version 1)
Quarter: 2012Q4

REPORT INFORMATION
  Report Type: Spontaneous
  Country: US (occurrence: None)
  Receive Date: 20120926
  Receipt Date: 20120926
  Transmission Date: 20130627
  Serious: Yes (Other)
  Sender: FDA-Public Use
  Company Number: ALK_02640_2012

PATIENT
  Sex: Male

DRUGS (1)
  1. VIVITROL [Suspect]
     Indication: PRODUCT USED FOR UNKNOWN INDICATION
     Route: 030

REACTIONS (6)
  - Staphylococcal abscess [None]
  - Injection site reaction [None]
  - Injection site abscess [None]
  - Injection site erythema [None]
  - Injection site warmth [None]
  - Injection site induration [None]
